FAERS Safety Report 15327057 (Version 1)
Quarter: 2018Q3

REPORT INFORMATION
  Report Type: Spontaneous
  Country: US (occurrence: US)
  Receive Date: 20180823
  Receipt Date: 20180823
  Transmission Date: 20181010
  Serious: Yes (Other)
  Sender: FDA-Public Use
  Company Number: None

PATIENT
  Age: 7 Year
  Sex: Male
  Weight: 28.8 kg

DRUGS (1)
  1. MIRALAX [Suspect]
     Active Substance: POLYETHYLENE GLYCOL 3350
     Indication: CONSTIPATION
     Dosage: ?          QUANTITY:3 TABLESPOON(S);?
     Route: 048
     Dates: start: 20160730, end: 20180725

REACTIONS (10)
  - Cough [None]
  - Abdominal pain [None]
  - Sleep terror [None]
  - Dizziness [None]
  - Heart rate increased [None]
  - Syncope [None]
  - Dyspnoea [None]
  - Tic [None]
  - Therapy change [None]
  - Vomiting [None]

NARRATIVE: CASE EVENT DATE: 20180418
